FAERS Safety Report 8859248 (Version 1)
Quarter: 2012Q4

REPORT INFORMATION
  Report Type: Spontaneous
  Country: DE (occurrence: None)
  Receive Date: 20121023
  Receipt Date: 20121023
  Transmission Date: 20130627
  Serious: Yes (Death, Other)
  Sender: FDA-Public Use
  Company Number: GER/GER/12/0026246

PATIENT
  Age: 52 Year
  Sex: Female

DRUGS (14)
  1. AMLODIPINE (AMLODIPINE) [Suspect]
     Indication: DRUG USE FOR UNKNOWN INDICATION
  2. AMLODIPINE (AMLODIPINE) [Suspect]
     Indication: DRUG USE FOR UNKNOWN INDICATION
  3. AMLODIPINE (AMLODIPINE) [Suspect]
     Indication: DRUG USE FOR UNKNOWN INDICATION
  4. PROTHIPENDYL [Suspect]
     Indication: DRUG USE FOR UNKNOWN INDICATION
  5. DOXEPIN [Suspect]
     Indication: DRUG USE FOR UNKNOWN INDICATION
  6. DOXEPIN [Suspect]
     Indication: DRUG USE FOR UNKNOWN INDICATION
  7. DOXEPIN [Suspect]
     Indication: DRUG USE FOR UNKNOWN INDICATION
  8. OLANZAPINE (OLANZAPINE) [Concomitant]
  9. TILIDINE (TILIDINE) [Concomitant]
  10. DIAZEPAM (DIAZEPAM) [Concomitant]
  11. METOPROLOL (METOPROLOL) [Concomitant]
  12. IBUPROFEN (IBUPROFEN) [Concomitant]
  13. CAFFEINE (CAFFEINE) [Concomitant]
  14. NICOTINE (NICOTINE) [Concomitant]

REACTIONS (9)
  - Gait disturbance [None]
  - Drooling [None]
  - Somnolence [None]
  - Decreased interest [None]
  - Pain [None]
  - Sleep disorder [None]
  - Metabolic disorder [None]
  - Toxicity to various agents [None]
  - Drug interaction [None]
